FAERS Safety Report 4817918-8 (Version None)
Quarter: 2005Q3

REPORT INFORMATION
  Report Type: 
  Country: None (occurrence: None)
  Receive Date: 20050929
  Receipt Date: 20050824
  Transmission Date: 20060218
  Serious: No
  Sender: FDA-Public Use
  Company Number: 05P-163-0309185-00

PATIENT
  Age: 44 Year
  Sex: Female
  Weight: 97.5234 kg

DRUGS (9)
  1. HUMIRA [Suspect]
     Indication: RHEUMATOID ARTHRITIS
     Dosage: 40 MG, 1 IN 2 WK, SUBCUTANEOUS
     Route: 058
     Dates: start: 20030101, end: 20050401
  2. ADVAIR DISKUS 100/50 [Concomitant]
  3. SALBUTAMOL [Concomitant]
  4. PHENYTOIN SODIUM [Concomitant]
  5. PHENOBARBITAL [Concomitant]
  6. EPINEPHRINE AUTO-INJECTOR [Concomitant]
  7. SINGULAIR [Concomitant]
  8. METHOTREXATE [Concomitant]
  9. ALENDRONATE SODIUM [Concomitant]

REACTIONS (2)
  - NASOPHARYNGITIS [None]
  - RASH [None]
